FAERS Safety Report 15945860 (Version 2)
Quarter: 2019Q1

REPORT INFORMATION
  Report Type: Report from Study
  Country: FR (occurrence: FR)
  Receive Date: 20190211
  Receipt Date: 20190215
  Transmission Date: 20190417
  Serious: Yes (Life-Threatening, Other)
  Sender: FDA-Public Use
  Company Number: FR-AUROBINDO-AUR-APL-2019-005274

PATIENT

DRUGS (12)
  1. OXALIPLATIN. [Suspect]
     Active Substance: OXALIPLATIN
     Indication: FOLLICLE CENTRE LYMPHOMA, FOLLICULAR GRADE I, II, III
  2. MELPHALAN. [Concomitant]
     Active Substance: MELPHALAN
     Indication: FOLLICLE CENTRE LYMPHOMA, FOLLICULAR GRADE I, II, III
     Dosage: UNK
     Route: 065
  3. OXALIPLATIN. [Suspect]
     Active Substance: OXALIPLATIN
     Indication: B-CELL LYMPHOMA
     Dosage: 4 CYCLICAL, EVERY 3 WEEKS
     Route: 065
     Dates: start: 201503
  4. RITUXIMAB. [Concomitant]
     Active Substance: RITUXIMAB
     Indication: FOLLICLE CENTRE LYMPHOMA, FOLLICULAR GRADE I, II, III
  5. CYTARABINE. [Concomitant]
     Active Substance: CYTARABINE
     Indication: FOLLICLE CENTRE LYMPHOMA, FOLLICULAR GRADE I, II, III
  6. BENDAMUSTINE [Concomitant]
     Active Substance: BENDAMUSTINE
     Indication: FOLLICLE CENTRE LYMPHOMA, FOLLICULAR GRADE I, II, III
  7. RITUXIMAB. [Concomitant]
     Active Substance: RITUXIMAB
     Indication: B-CELL LYMPHOMA
     Dosage: 4 CYCLICAL, EVERY 3 WEEKS
     Route: 065
     Dates: start: 201503
  8. ETOPOSIDE. [Concomitant]
     Active Substance: ETOPOSIDE
     Indication: FOLLICLE CENTRE LYMPHOMA, FOLLICULAR GRADE I, II, III
     Dosage: UNK UNK, CYCLICAL
     Route: 065
  9. BENDAMUSTINE [Concomitant]
     Active Substance: BENDAMUSTINE
     Indication: B-CELL LYMPHOMA
     Dosage: 200 MILLIGRAM/SQ. METER
     Route: 065
  10. DEXAMETHASONE. [Concomitant]
     Active Substance: DEXAMETHASONE
     Indication: B-CELL LYMPHOMA
     Dosage: 4 CYCLICAL, EVERY 3 WEEKS
     Route: 065
     Dates: start: 201503
  11. DEXAMETHASONE. [Concomitant]
     Active Substance: DEXAMETHASONE
     Indication: FOLLICLE CENTRE LYMPHOMA, FOLLICULAR GRADE I, II, III
  12. CYTARABINE. [Concomitant]
     Active Substance: CYTARABINE
     Indication: B-CELL LYMPHOMA
     Dosage: 4 CYCLICAL, HIGH-DOSE; EVERY 3 WEEKS
     Route: 065
     Dates: start: 201503

REACTIONS (8)
  - Coagulation factor V level decreased [Unknown]
  - Ascites [Unknown]
  - Liver tenderness [Recovering/Resolving]
  - Venoocclusive disease [Recovered/Resolved]
  - Jaundice [Recovering/Resolving]
  - Hepatic encephalopathy [Recovered/Resolved]
  - Venoocclusive liver disease [Recovered/Resolved]
  - Weight increased [Unknown]
